FAERS Safety Report 6371251-4 (Version None)
Quarter: 2009Q3

REPORT INFORMATION
  Report Type: 
  Country: None (occurrence: None)
  Receive Date: 20090923
  Receipt Date: 20071108
  Transmission Date: 20100115
  Serious: Yes (Other)
  Sender: FDA-Public Use
  Company Number: US-ASTRAZENECA-2006UW27600

PATIENT
  Sex: Female
  Weight: 73.5 kg

DRUGS (14)
  1. SEROQUEL [Suspect]
     Indication: SCHIZOPHRENIA
     Dosage: 100 MG, 200 MG, 300 MG
     Route: 048
     Dates: start: 20011001, end: 20050701
  2. SEROQUEL [Suspect]
     Route: 048
     Dates: start: 20050624
  3. RISPERDAL [Suspect]
     Dosage: 2MG-8MG DAILY
     Route: 048
     Dates: start: 19960311
  4. RISPERDAL [Suspect]
     Dates: start: 20050801, end: 20051201
  5. ZYPREXA [Suspect]
     Dosage: 1, 4, 5, 10, 15, 20 MG DOSES
     Dates: start: 19940401, end: 20050901
  6. ZOLOFT [Concomitant]
     Dosage: 50MG-100MG DAILY
     Route: 048
     Dates: start: 19960311
  7. KLONOPIN [Concomitant]
     Dosage: 0.5 MG TO 1 MG DAILY
     Route: 048
     Dates: start: 19960311
  8. EFFEXOR [Concomitant]
     Dates: start: 20080428
  9. NEURONTIN [Concomitant]
     Route: 048
     Dates: start: 20020805
  10. LESCOL XL [Concomitant]
     Dates: start: 20040213
  11. ABILIFY [Concomitant]
     Dates: start: 20050521
  12. FOSAMAX [Concomitant]
     Dates: start: 20050524
  13. TRAZODONE [Concomitant]
     Dates: start: 20050608
  14. RESTORIL [Concomitant]
     Dates: start: 20061221

REACTIONS (2)
  - TARDIVE DYSKINESIA [None]
  - TYPE 2 DIABETES MELLITUS [None]
